FAERS Safety Report 23085140 (Version 1)
Quarter: 2023Q4

REPORT INFORMATION
  Report Type: Report from Study
  Country: US (occurrence: US)
  Receive Date: 20231019
  Receipt Date: 20231019
  Transmission Date: 20240110
  Serious: Yes (Hospitalization)
  Sender: FDA-Public Use
  Company Number: US-MIRUM PHARMACEUTICALS, INC.-US-MIRM-000576

PATIENT
  Sex: Male

DRUGS (1)
  1. LIVMARLI [Suspect]
     Active Substance: MARALIXIBAT CHLORIDE
     Indication: Product used for unknown indication
     Route: 048

REACTIONS (7)
  - Post procedural haemorrhage [Recovered/Resolved]
  - Pruritus [Unknown]
  - Soft tissue mass [Unknown]
  - Jaundice [Unknown]
  - Groin infection [Unknown]
  - Product dose omission in error [Unknown]
  - Drug ineffective [Unknown]
